FAERS Safety Report 10901788 (Version 4)
Quarter: 2015Q4

REPORT INFORMATION
  Report Type: Spontaneous
  Country: CO (occurrence: CO)
  Receive Date: 20150310
  Receipt Date: 20151102
  Transmission Date: 20160304
  Serious: Yes (Life-Threatening, Hospitalization)
  Sender: FDA-Public Use
  Company Number: CO-GE HEALTHCARE MEDICAL DIAGNOSTICS-OMPQ-PR-1503S-0197

PATIENT
  Sex: Female

DRUGS (2)
  1. OMNIPAQUE [Suspect]
     Active Substance: IOHEXOL
     Indication: DIAGNOSTIC PROCEDURE
  2. OMNIPAQUE [Suspect]
     Active Substance: IOHEXOL
     Indication: HEADACHE
     Route: 042
     Dates: start: 20150302, end: 20150302

REACTIONS (8)
  - Pain [Unknown]
  - Pallor [Unknown]
  - Hypothermia [Unknown]
  - Chills [Recovered/Resolved]
  - Tachycardia [Unknown]
  - Hypertension [Unknown]
  - Headache [Unknown]
  - Nausea [Unknown]

NARRATIVE: CASE EVENT DATE: 20150302
